FAERS Safety Report 21740701 (Version 1)
Quarter: 2022Q4

REPORT INFORMATION
  Report Type: Spontaneous
  Country: US (occurrence: US)
  Receive Date: 20221216
  Receipt Date: 20221216
  Transmission Date: 20230112
  Serious: Yes (Life-Threatening, Hospitalization, Other)
  Sender: FDA-Public Use
  Company Number: US-PFIZER INC-202201359124

PATIENT
  Age: 22 Year
  Sex: Male

DRUGS (2)
  1. IDARUBICIN HYDROCHLORIDE [Suspect]
     Active Substance: IDARUBICIN HYDROCHLORIDE
     Indication: Acute myeloid leukaemia
     Dosage: 12 MG/M2, ON DAYS 1-3, CYCLIC
  2. CYTARABINE [Suspect]
     Active Substance: CYTARABINE
     Indication: Acute myeloid leukaemia
     Dosage: 200 MG/M2, ON DAYS 1-7, CYCLIC

REACTIONS (7)
  - Neutropenic colitis [Recovered/Resolved]
  - Bacillus infection [Recovered/Resolved]
  - Sepsis [Recovered/Resolved]
  - Liver abscess [Recovered/Resolved]
  - Colitis [Recovered/Resolved]
  - Jaundice [Recovered/Resolved]
  - Large intestinal ulcer [Recovered/Resolved]
